FAERS Safety Report 6602919-X (Version None)
Quarter: 2010Q1

REPORT INFORMATION
  Report Type: 
  Country: None (occurrence: None)
  Receive Date: 20100219
  Receipt Date: 20100203
  Transmission Date: 20100710
  Serious: Yes (Other)
  Sender: FDA-Public Use
  Company Number: 2010000508

PATIENT
  Age: 65 Year
  Sex: Female
  Weight: 49.9 kg

DRUGS (1)
  1. FRAGMIN [Suspect]
     Dosage: 7500 IU

REACTIONS (3)
  - INJECTION SITE INJURY [None]
  - INJECTION SITE PAIN [None]
  - NEEDLE ISSUE [None]
